FAERS Safety Report 6523672-4 (Version None)
Quarter: 2009Q4

REPORT INFORMATION
  Report Type: 
  Country: None (occurrence: None)
  Receive Date: 20091231
  Receipt Date: 20091222
  Transmission Date: 20100525
  Serious: Yes (Hospitalization)
  Sender: FDA-Public Use
  Company Number: US-JNJFOC-20091207247

PATIENT
  Sex: Female
  Weight: 8.29 kg

DRUGS (9)
  1. INFLIXIMAB [Suspect]
     Indication: INFLAMMATORY BOWEL DISEASE
     Route: 042
  2. ANTIBIOTICS [Concomitant]
     Indication: INFLAMMATORY BOWEL DISEASE
  3. METHOTREXATE [Concomitant]
  4. PREVACID [Concomitant]
  5. MICONAZOLE [Concomitant]
  6. NYSTATIN [Concomitant]
  7. VANCOMYCIN [Concomitant]
  8. CYCLOPHOSPHAMIDE [Concomitant]
  9. CLOTRIMAZOLE [Concomitant]

REACTIONS (1)
  - WEIGHT DECREASED [None]
